FAERS Safety Report 24943601 (Version 1)
Quarter: 2025Q1

REPORT INFORMATION
  Report Type: Spontaneous
  Country: US (occurrence: US)
  Receive Date: 20250207
  Receipt Date: 20250207
  Transmission Date: 20250409
  Serious: Yes (Hospitalization, Other)
  Sender: SPECGX
  Company Number: US-SPECGX-T202500372

PATIENT
  Sex: Male

DRUGS (7)
  1. HYDROMORPHONE [Suspect]
     Active Substance: HYDROMORPHONE
     Indication: Product used for unknown indication
     Route: 064
  2. OXYCODONE [Suspect]
     Active Substance: OXYCODONE
     Indication: Product used for unknown indication
     Route: 064
  3. MORPHINE [Suspect]
     Active Substance: MORPHINE
     Indication: Drug withdrawal syndrome neonatal
     Route: 065
  4. FLUOXETINE [Suspect]
     Active Substance: FLUOXETINE HYDROCHLORIDE
     Indication: Product used for unknown indication
     Route: 064
  5. QUETIAPINE [Suspect]
     Active Substance: QUETIAPINE
     Indication: Product used for unknown indication
     Route: 064
  6. CLONAZEPAM [Suspect]
     Active Substance: CLONAZEPAM
     Indication: Product used for unknown indication
     Route: 064
  7. HEROIN [Suspect]
     Active Substance: DIAMORPHINE
     Indication: Product used for unknown indication
     Route: 064

REACTIONS (9)
  - Premature baby [Unknown]
  - Drug withdrawal syndrome neonatal [Unknown]
  - Hypertonia neonatal [Unknown]
  - Decerebrate posture [Unknown]
  - Infantile back arching [Unknown]
  - Dyskinesia [Unknown]
  - Product use issue [Unknown]
  - Product use in unapproved indication [Unknown]
  - Foetal exposure during pregnancy [Unknown]
